FAERS Safety Report 21424347 (Version 1)
Quarter: 2022Q4

REPORT INFORMATION
  Report Type: Report from Study
  Country: US (occurrence: US)
  Receive Date: 20221007
  Receipt Date: 20221007
  Transmission Date: 20230113
  Serious: No
  Sender: FDA-Public Use
  Company Number: US-NOVARTISTESTPH-NVSC2022US226136

PATIENT
  Sex: Female
  Weight: 115.2 kg

DRUGS (1)
  1. COSENTYX [Suspect]
     Active Substance: SECUKINUMAB
     Indication: Product used for unknown indication
     Dosage: UNK (FOR 2 YEARS)
     Route: 065

REACTIONS (2)
  - Exostosis [Recovering/Resolving]
  - Drug ineffective [Unknown]
